FAERS Safety Report 25813726 (Version 1)
Quarter: 2025Q3

REPORT INFORMATION
  Report Type: Spontaneous
  Country: EU (occurrence: EU)
  Receive Date: 20250917
  Receipt Date: 20250917
  Transmission Date: 20251020
  Serious: Yes (Other)
  Sender: ABBVIE
  Company Number: EU-ABBVIE-6461839

PATIENT
  Sex: Female

DRUGS (1)
  1. UPADACITINIB [Suspect]
     Active Substance: UPADACITINIB
     Indication: Colitis ulcerative
     Route: 048

REACTIONS (3)
  - Meningitis [Recovered/Resolved]
  - Cerebral venous thrombosis [Recovered/Resolved]
  - Central nervous system vasculitis [Recovered/Resolved]

NARRATIVE: CASE EVENT DATE: 20250201
